FAERS Safety Report 7378335-2 (Version None)
Quarter: 2011Q1

REPORT INFORMATION
  Report Type: 
  Country: None (occurrence: None)
  Receive Date: 20110328
  Receipt Date: 20110312
  Transmission Date: 20110831
  Serious: Yes (Other)
  Sender: FDA-Public Use
  Company Number: DK-JNJFOC-2009029222

PATIENT
  Age: 72 Year
  Sex: Female

DRUGS (2)
  1. EFFEXOR [Suspect]
     Indication: ANTIDEPRESSANT THERAPY
     Dosage: DAILY DOSE TEXT: 75 MG 3 TIMES DAILY
     Route: 048
  2. LISTERINE MOUTHWASH [Suspect]
     Indication: DENTAL DISORDER PROPHYLAXIS
     Route: 048

REACTIONS (5)
  - DRY MOUTH [None]
  - COMPULSIVE LIP BITING [None]
  - PAIN [None]
  - ORAL PAIN [None]
  - GLOSSITIS [None]
